FAERS Safety Report 16598430 (Version 1)
Quarter: 2019Q3

REPORT INFORMATION
  Report Type: Spontaneous
  Country: US (occurrence: US)
  Receive Date: 20190719
  Receipt Date: 20190719
  Transmission Date: 20191004
  Serious: No
  Sender: FDA-Public Use
  Company Number: US-SEPTODONT-201804710

PATIENT
  Age: 12 Year

DRUGS (3)
  1. ORAVERSE [Suspect]
     Active Substance: PHENTOLAMINE MESYLATE
     Indication: DENTAL LOCAL ANAESTHESIA
     Dosage: LOWER RIGHT SIDE OF PATIENT^S MOUTH
  2. NITROUS [Concomitant]
     Active Substance: NITROUS OXIDE
     Indication: PRODUCT USED FOR UNKNOWN INDICATION
  3. SEPTOCAINE [Suspect]
     Active Substance: ARTICAINE HYDROCHLORIDE\EPINEPHRINE BITARTRATE
     Indication: DENTAL LOCAL ANAESTHESIA
     Dosage: LOWER RIGHT SIDE OF PATIENT^S MOUTH

REACTIONS (3)
  - Hypoaesthesia [Recovered/Resolved]
  - Paraesthesia [Recovered/Resolved]
  - Feeling abnormal [Recovered/Resolved]
